FAERS Safety Report 9603696 (Version 1)
Quarter: 2013Q4

REPORT INFORMATION
  Report Type: Report from Study
  Country: CA (occurrence: CA)
  Receive Date: 20131007
  Receipt Date: 20131007
  Transmission Date: 20140711
  Serious: Yes (Other)
  Sender: FDA-Public Use
  Company Number: CA-ABBVIE-13P-028-1153705-00

PATIENT
  Sex: Female
  Weight: 68 kg

DRUGS (2)
  1. KALETRA 200/50 [Suspect]
     Indication: ANTIRETROVIRAL THERAPY
     Dosage: 200.50 MG
     Route: 048
     Dates: start: 20121113
  2. COMBIVIR [Concomitant]
     Indication: HIV INFECTION
     Dosage: 150/300 MG, DAILY
     Route: 048
     Dates: start: 20121113

REACTIONS (2)
  - Neck mass [Recovered/Resolved]
  - Blood thyroid stimulating hormone increased [Unknown]
